FAERS Safety Report 11954005 (Version 1)
Quarter: 2016Q1

REPORT INFORMATION
  Report Type: Spontaneous
  Country: US (occurrence: US)
  Receive Date: 20160126
  Receipt Date: 20160126
  Transmission Date: 20160526
  Serious: Yes (Hospitalization)
  Sender: FDA-Public Use
  Company Number: US-BRACCO-012968

PATIENT
  Age: 67 Year
  Sex: Male

DRUGS (1)
  1. BARIUM [Suspect]
     Active Substance: BARIUM
     Indication: X-RAY WITH CONTRAST UPPER GASTROINTESTINAL TRACT
     Route: 048

REACTIONS (2)
  - Acute respiratory failure [Unknown]
  - Pneumonitis [Unknown]
